FAERS Safety Report 15500676 (Version 1)
Quarter: 2018Q4

REPORT INFORMATION
  Report Type: Other
  Country: ES (occurrence: ES)
  Receive Date: 20181015
  Receipt Date: 20181015
  Transmission Date: 20190205
  Serious: Yes (Death)
  Sender: FDA-Public Use
  Company Number: ES-EMD SERONO-9046431

PATIENT
  Age: 56 Year
  Sex: Male

DRUGS (1)
  1. AVELUMAB [Suspect]
     Active Substance: AVELUMAB
     Indication: TRANSITIONAL CELL CARCINOMA

REACTIONS (4)
  - Myositis [Fatal]
  - Fasciitis [Fatal]
  - Disease progression [Fatal]
  - Off label use [Unknown]
